FAERS Safety Report 4541071-1 (Version None)
Quarter: 2004Q4

REPORT INFORMATION
  Report Type: 
  Country: None (occurrence: None)
  Receive Date: 20041228
  Receipt Date: 20041215
  Transmission Date: 20050328
  Serious: No
  Sender: FDA-Public Use
  Company Number: 2004CG02042

PATIENT
  Age: 71 Year
  Sex: Female

DRUGS (3)
  1. ARIMIDEX [Suspect]
     Indication: BREAST CANCER
     Dosage: 1 MG QD PO
     Route: 048
     Dates: start: 20040501
  2. TETANUS VACCINE [Suspect]
     Indication: PROPHYLAXIS
     Dates: start: 20040901, end: 20040901
  3. TETANUS VACCINE [Suspect]
     Indication: TETANUS
     Dates: start: 20040901, end: 20040901

REACTIONS (4)
  - ABDOMINAL PAIN [None]
  - MUSCULOSKELETAL STIFFNESS [None]
  - PAIN IN EXTREMITY [None]
  - TRISMUS [None]
